FAERS Safety Report 12965970 (Version 2)
Quarter: 2016Q4

REPORT INFORMATION
  Report Type: Spontaneous
  Country: CN (occurrence: CN)
  Receive Date: 20161122
  Receipt Date: 20161130
  Transmission Date: 20170207
  Serious: Yes (Other)
  Sender: FDA-Public Use
  Company Number: CN-BRACCO-002962

PATIENT
  Age: 65 Year
  Sex: Female
  Weight: 51 kg

DRUGS (1)
  1. IOPAMIRO [Suspect]
     Active Substance: IOPAMIDOL
     Indication: COMPUTERISED TOMOGRAM ABDOMEN
     Route: 042
     Dates: start: 20161116, end: 20161116

REACTIONS (6)
  - Cyanosis [Recovering/Resolving]
  - Aphasia [Recovering/Resolving]
  - Salivary hypersecretion [Recovering/Resolving]
  - Muscle rigidity [Recovering/Resolving]
  - Oxygen saturation immeasurable [Recovered/Resolved]
  - Loss of consciousness [Recovering/Resolving]

NARRATIVE: CASE EVENT DATE: 20161116
